FAERS Safety Report 4997546-4 (Version None)
Quarter: 2006Q2

REPORT INFORMATION
  Report Type: 
  Country: None (occurrence: None)
  Receive Date: 20060509
  Receipt Date: 20060428
  Transmission Date: 20061013
  Serious: Yes (Hospitalization)
  Sender: FDA-Public Use
  Company Number: US-MERCK-0605USA00049

PATIENT
  Age: 63 Year
  Sex: Female
  Weight: 73 kg

DRUGS (10)
  1. VIOXX [Suspect]
     Indication: ARTHRITIS
     Route: 048
     Dates: start: 20001201, end: 20020401
  2. PREDNISONE [Concomitant]
     Route: 065
  3. K-DUR 10 [Concomitant]
     Route: 065
  4. ZIAC [Concomitant]
     Route: 065
  5. ACTOS [Concomitant]
     Route: 065
  6. PRILOSEC [Concomitant]
     Route: 065
  7. FOLIC ACID [Concomitant]
     Route: 065
  8. METHOTREXATE [Concomitant]
     Route: 065
  9. REMICADE [Concomitant]
     Route: 065
  10. CARAFATE [Concomitant]
     Route: 065

REACTIONS (1)
  - MYOCARDIAL INFARCTION [None]
